FAERS Safety Report 10192400 (Version 1)
Quarter: 2014Q2

REPORT INFORMATION
  Report Type: Spontaneous
  Country: US (occurrence: US)
  Receive Date: 20140523
  Receipt Date: 20140523
  Transmission Date: 20141212
  Serious: No
  Sender: FDA-Public Use
  Company Number: US-PFIZER INC-2014137108

PATIENT
  Age: 19 Year
  Sex: Male
  Weight: 83.9 kg

DRUGS (1)
  1. ADVIL [Suspect]
     Indication: HEADACHE
     Dosage: 200 MG, UNK
     Dates: start: 20140518

REACTIONS (2)
  - Extra dose administered [Unknown]
  - Dizziness [Recovering/Resolving]
